FAERS Safety Report 8326698-3 (Version None)
Quarter: 2012Q2

REPORT INFORMATION
  Report Type: 
  Country: None (occurrence: None)
  Receive Date: 20120501
  Receipt Date: 20120424
  Transmission Date: 20120825
  Serious: Yes (Other)
  Sender: FDA-Public Use
  Company Number: US-PFIZER INC-2012051667

PATIENT
  Sex: Female
  Weight: 81.633 kg

DRUGS (4)
  1. OXYCONTIN [Interacting]
     Dosage: UNK
     Dates: start: 20120101, end: 20120203
  2. LYRICA [Suspect]
     Indication: PAIN
     Dosage: 1 QHS
     Route: 048
     Dates: start: 20120203, end: 20120206
  3. TOPAMAX [Concomitant]
     Dosage: UNK
  4. VENLAFAXINE [Concomitant]
     Dosage: UNK

REACTIONS (8)
  - DISORIENTATION [None]
  - MEMORY IMPAIRMENT [None]
  - AGGRESSION [None]
  - SOMNOLENCE [None]
  - RETCHING [None]
  - DRUG INTERACTION [None]
  - SPEECH DISORDER [None]
  - CONFUSIONAL STATE [None]
